FAERS Safety Report 15468742 (Version 1)
Quarter: 2018Q4

REPORT INFORMATION
  Report Type: Spontaneous
  Country: US (occurrence: US)
  Receive Date: 20181005
  Receipt Date: 20181005
  Transmission Date: 20190204
  Serious: Yes (Other)
  Sender: FDA-Public Use
  Company Number: US-JNJFOC-20181003061

PATIENT
  Age: 53 Year
  Sex: Female

DRUGS (1)
  1. INVOKANA [Suspect]
     Active Substance: CANAGLIFLOZIN
     Indication: TYPE 2 DIABETES MELLITUS
     Route: 048
     Dates: start: 20151230

REACTIONS (6)
  - Osteomyelitis chronic [Unknown]
  - Leg amputation [Unknown]
  - Toe amputation [Unknown]
  - Osteomyelitis [Unknown]
  - Cellulitis [Unknown]
  - Impaired healing [Unknown]

NARRATIVE: CASE EVENT DATE: 20170210
